FAERS Safety Report 16218947 (Version 1)
Quarter: 2019Q2

REPORT INFORMATION
  Report Type: Spontaneous
  Country: US (occurrence: US)
  Receive Date: 20190419
  Receipt Date: 20190419
  Transmission Date: 20190711
  Serious: No
  Sender: FDA-Public Use
  Company Number: US-PFIZER INC-2019164459

PATIENT
  Age: 6 Year
  Sex: Male
  Weight: 17.6 kg

DRUGS (2)
  1. RAPAMUNE [Suspect]
     Active Substance: SIROLIMUS
     Indication: IPEX SYNDROME
     Dosage: 0.8 ML, UNK
     Dates: start: 201903
  2. RAPAMUNE [Suspect]
     Active Substance: SIROLIMUS
     Dosage: 1 TEASPOON, 1X/DAY (IN THE MORNING)
     Route: 048
     Dates: start: 20190401

REACTIONS (4)
  - Weight increased [Unknown]
  - Increased appetite [Unknown]
  - Drug level below therapeutic [Unknown]
  - Product use in unapproved indication [Unknown]

NARRATIVE: CASE EVENT DATE: 201903
